FAERS Safety Report 4939324-8 (Version None)
Quarter: 2006Q1

REPORT INFORMATION
  Report Type: 
  Country: None (occurrence: None)
  Receive Date: 20060306
  Receipt Date: 20060222
  Transmission Date: 20060701
  Serious: Yes (Other)
  Sender: FDA-Public Use
  Company Number: 222444

PATIENT
  Age: 64 Year
  Sex: Male
  Weight: 54 kg

DRUGS (10)
  1. RITUXAN [Suspect]
     Indication: NON-HODGKIN'S LYMPHOMA
     Dosage: 600 MG, INTRAVENOUS
     Route: 042
     Dates: start: 20041210
  2. CYCLOPHOSPHAMIDE [Suspect]
     Indication: LYMPHOMA
     Dosage: 1200 MG, INTRAVENOUS
     Route: 042
     Dates: start: 20041213
  3. DOXORUBICIN HCL [Suspect]
     Indication: LYMPHOMA
     Dosage: 2 MG, INTRAVENOUS
     Route: 042
     Dates: start: 20041213
  4. VINCRISTINE [Suspect]
     Indication: LYMPHOMA
     Dosage: 2 MG, INTRAVENOUS
     Route: 042
     Dates: start: 20041213
  5. PREDNISONE TAB [Suspect]
     Indication: LYMPHOMA
     Dosage: 60 MG, ORAL
     Route: 048
     Dates: start: 20041213
  6. HYDROCORTISONE [Concomitant]
  7. IBUPROFEN [Concomitant]
  8. HYDROXYZINE [Concomitant]
  9. ONDANSETRON HCL (ONDANSETRON HYDROCHLORIDE) [Concomitant]
  10. GRANISETRON  HCL [Concomitant]

REACTIONS (6)
  - CHILLS [None]
  - HAEMOGLOBIN DECREASED [None]
  - HYPOAESTHESIA ORAL [None]
  - INTERSTITIAL LUNG DISEASE [None]
  - NEUTROPHIL PERCENTAGE DECREASED [None]
  - WHITE BLOOD CELL COUNT DECREASED [None]
